FAERS Safety Report 9761236 (Version 2)
Quarter: 2013Q4

REPORT INFORMATION
  Report Type: Spontaneous
  Country: DK (occurrence: DK)
  Receive Date: 20131216
  Receipt Date: 20131216
  Transmission Date: 20140711
  Serious: Yes (Hospitalization)
  Sender: FDA-Public Use
  Company Number: DK-BRISTOL-MYERS SQUIBB COMPANY-19855550

PATIENT
  Age: 82 Year
  Sex: Male

DRUGS (13)
  1. ELIQUIS [Suspect]
     Dosage: TABS
     Dates: start: 20130808
  2. METOPROLOL SUCCINATE [Concomitant]
  3. PANTOPRAZOLE [Concomitant]
  4. BARACLUDE [Concomitant]
  5. DIGOXIN [Concomitant]
  6. DOXAZOSIN [Concomitant]
  7. FRAGMIN [Concomitant]
  8. KALEORID [Concomitant]
  9. KININ [Concomitant]
  10. PARACETAMOL [Concomitant]
  11. SPIRIVA [Concomitant]
  12. TOBREX [Concomitant]
     Dosage: EYE DROPS
  13. VERAPAMIL [Concomitant]

REACTIONS (1)
  - Throat cancer [Unknown]
